FAERS Safety Report 16972962 (Version 1)
Quarter: 2019Q4

REPORT INFORMATION
  Report Type: Spontaneous
  Country: US (occurrence: US)
  Receive Date: 20191030
  Receipt Date: 20191030
  Transmission Date: 20200122
  Serious: No
  Sender: FDA-Public Use
  Company Number: US-JNJFOC-20191036667

PATIENT
  Sex: Male
  Weight: 99.88 kg

DRUGS (2)
  1. PEPCID AC [Suspect]
     Active Substance: FAMOTIDINE
     Indication: DYSPEPSIA
     Dosage: DRUG LAST ADMIN DATE: 22-OCT-2019?1 TABLET TWICE DAILY/ DEPENDS ON THE SYMPTOMS
     Route: 048
     Dates: start: 20190903
  2. PEPCID AC [Suspect]
     Active Substance: FAMOTIDINE
     Dosage: DRUG LAST ADMIN DATE: 22-OCT-2019?1 TABLET TWICE DAILY/ DEPENDS ON THE SYMPTOMS
     Route: 048

REACTIONS (1)
  - Drug ineffective [Unknown]

NARRATIVE: CASE EVENT DATE: 2019
